FAERS Safety Report 4571990-1 (Version None)
Quarter: 2005Q1

REPORT INFORMATION
  Report Type: 
  Country: None (occurrence: None)
  Receive Date: 20050202
  Receipt Date: 20050113
  Transmission Date: 20050727
  Serious: Yes (Other)
  Sender: FDA-Public Use
  Company Number: USA050188196

PATIENT
  Sex: Male

DRUGS (3)
  1. ALIMTA [Suspect]
     Indication: NON-SMALL CELL LUNG CANCER
     Dates: start: 20041209
  2. VITAMIN SUPPLEMENTATION [Concomitant]
  3. DECADRON [Concomitant]

REACTIONS (5)
  - CELLULITIS [None]
  - ERYTHEMA [None]
  - RASH [None]
  - SECRETION DISCHARGE [None]
  - SKIN EXFOLIATION [None]
